FAERS Safety Report 6364956-2 (Version None)
Quarter: 2009Q3

REPORT INFORMATION
  Report Type: 
  Country: None (occurrence: None)
  Receive Date: 20090919
  Receipt Date: 20090730
  Transmission Date: 20100115
  Serious: No
  Sender: FDA-Public Use
  Company Number: US-ABBOTT-09P-163-0589031-00

PATIENT
  Sex: Female
  Weight: 95.794 kg

DRUGS (5)
  1. HUMIRA [Suspect]
     Indication: RHEUMATOID ARTHRITIS
     Route: 058
     Dates: start: 20090101
  2. HUMIRA [Suspect]
     Indication: OSTEOARTHRITIS
  3. LYRICA [Concomitant]
     Indication: DRUG USE FOR UNKNOWN INDICATION
  4. TYLENOL (CAPLET) [Concomitant]
     Indication: DRUG USE FOR UNKNOWN INDICATION
  5. ULTRAM ER [Concomitant]
     Indication: DRUG USE FOR UNKNOWN INDICATION

REACTIONS (7)
  - BACK PAIN [None]
  - CYSTITIS [None]
  - INJECTION SITE IRRITATION [None]
  - MUSCULOSKELETAL STIFFNESS [None]
  - OEDEMA PERIPHERAL [None]
  - PAIN IN EXTREMITY [None]
  - RASH PUSTULAR [None]
